FAERS Safety Report 7400810-2 (Version None)
Quarter: 2011Q2

REPORT INFORMATION
  Report Type: 
  Country: None (occurrence: None)
  Receive Date: 20110407
  Receipt Date: 20110310
  Transmission Date: 20111010
  Serious: Yes (Hospitalization)
  Sender: FDA-Public Use
  Company Number: US-BAYER-201038460NA

PATIENT
  Sex: Female
  Weight: 68 kg

DRUGS (5)
  1. NSAID'S [Concomitant]
     Dosage: UNK UNK, PRN
     Dates: start: 20030601
  2. ADVIL LIQUI-GELS [Concomitant]
     Dosage: UNK UNK, PRN
     Dates: start: 20030601
  3. YASMIN [Suspect]
     Indication: ORAL CONTRACEPTION
     Dosage: UNK
     Route: 048
     Dates: start: 20030101, end: 20030601
  4. UNCODEABLE ^UNCLASSIFIABLE^ [Concomitant]
     Dosage: UNK UNK, PRN
     Dates: start: 20030601
  5. IBUPROFEN [Concomitant]
     Dosage: UNK UNK, PRN
     Dates: start: 20030601

REACTIONS (3)
  - DEEP VEIN THROMBOSIS [None]
  - PULMONARY EMBOLISM [None]
  - PAIN [None]
